FAERS Safety Report 7308504-9 (Version None)
Quarter: 2011Q1

REPORT INFORMATION
  Report Type: 
  Country: None (occurrence: None)
  Receive Date: 20110223
  Receipt Date: 20101217
  Transmission Date: 20110831
  Serious: Yes (Hospitalization, Other)
  Sender: FDA-Public Use
  Company Number: US-BAYER-201031421NA

PATIENT
  Sex: Female
  Weight: 73 kg

DRUGS (9)
  1. YAZ [Suspect]
     Indication: PRODUCT USED FOR UNKNOWN INDICATION
     Route: 048
     Dates: start: 20071001, end: 20080701
  2. DIUREX [Suspect]
     Dosage: UNK UNK, QD
  3. CYMBALTA [Concomitant]
     Dosage: 60 MG, QD
  4. OSCAL [Concomitant]
     Dosage: 500 MG, QD
  5. AMITRIPTYLINE [Concomitant]
     Dosage: 10 MG, PRN
  6. MULTI-VITAMIN [Concomitant]
     Dosage: UNK UNK, QD
  7. FLEXERIL [Concomitant]
     Dosage: 10 MG, QD
  8. NEURONTIN [Concomitant]
     Dosage: 800 MG, QD
  9. VALTREX [Concomitant]
     Dosage: 1 G, PRN

REACTIONS (5)
  - CHOLECYSTITIS CHRONIC [None]
  - ABDOMINAL RIGIDITY [None]
  - PANCREATITIS [None]
  - ABDOMINAL DISCOMFORT [None]
  - ABDOMINAL PAIN UPPER [None]
